FAERS Safety Report 17058094 (Version 7)
Quarter: 2020Q2

REPORT INFORMATION
  Report Type: Spontaneous
  Country: US (occurrence: US)
  Receive Date: 20191121
  Receipt Date: 20200409
  Transmission Date: 20200713
  Serious: Yes (Other)
  Sender: FDA-Public Use
  Company Number: US-PFIZER INC-2017389580

PATIENT
  Age: 70 Year
  Sex: Female
  Weight: 76.66 kg

DRUGS (4)
  1. DETROL LA [Suspect]
     Active Substance: TOLTERODINE TARTRATE
     Indication: STRESS URINARY INCONTINENCE
     Dosage: UNK
  2. LYRICA [Concomitant]
     Active Substance: PREGABALIN
     Indication: NEURALGIA
     Dosage: UNK
  3. DETROL LA [Suspect]
     Active Substance: TOLTERODINE TARTRATE
     Dosage: 4 MG, 1X/DAY (QD)
  4. DETROL LA [Suspect]
     Active Substance: TOLTERODINE TARTRATE
     Dosage: 4 MG, DAILY
     Route: 048
     Dates: start: 2016

REACTIONS (7)
  - Lacunar infarction [Unknown]
  - Off label use [Unknown]
  - Lacunar stroke [Recovering/Resolving]
  - Pain in extremity [Unknown]
  - Cerebrovascular accident [Unknown]
  - Speech disorder [Not Recovered/Not Resolved]
  - Product use in unapproved indication [Unknown]

NARRATIVE: CASE EVENT DATE: 20191008
